FAERS Safety Report 25364453 (Version 1)
Quarter: 2025Q2

REPORT INFORMATION
  Report Type: Spontaneous
  Country: US (occurrence: US)
  Receive Date: 20250527
  Receipt Date: 20250527
  Transmission Date: 20250716
  Serious: Yes (Other)
  Sender: PFIZER
  Company Number: US-PFIZER INC-202500107853

PATIENT
  Age: 33 Year
  Sex: Female

DRUGS (1)
  1. BOSULIF [Suspect]
     Active Substance: BOSUTINIB MONOHYDRATE
     Dosage: 500 MG BY MOUTH DAILY
     Route: 048

REACTIONS (7)
  - Thyroidectomy [Unknown]
  - Diabetes mellitus [Unknown]
  - Focal nodular hyperplasia [Unknown]
  - Abdominal pain [Unknown]
  - Vomiting [Unknown]
  - Hypertension [Unknown]
  - Blood cholesterol increased [Unknown]
